FAERS Safety Report 8856898 (Version 1)
Quarter: 2012Q4

REPORT INFORMATION
  Report Type: Spontaneous
  Country: FR (occurrence: None)
  Receive Date: 20121019
  Receipt Date: 20121019
  Transmission Date: 20130627
  Serious: Yes (Death, Other)
  Sender: FDA-Public Use
  Company Number: EUS-2012-00812

PATIENT
  Age: 53 Year
  Sex: Male

DRUGS (3)
  1. ASPARAGINASE [Suspect]
     Indication: ACUTE LYMPHOCYTIC LEUKAEMIA
     Dates: start: 20081224, end: 20090213
  2. ASPARAGINASE [Suspect]
     Indication: ACUTE LYMPHOCYTIC LEUKAEMIA
     Dates: start: 20090113
  3. ASPARAGINASE [Suspect]
     Indication: ACUTE LYMPHOCYTIC LEUKAEMIA
     Dates: start: 20090213

REACTIONS (4)
  - Coronary artery thrombosis [None]
  - Myocardial ischaemia [None]
  - Coronary artery occlusion [None]
  - Stem cell transplant [None]
